FAERS Safety Report 7911218 (Version 9)
Quarter: 2013Q2

REPORT INFORMATION
  Report Type: Spontaneous
  Country: US (occurrence: US)
  Receive Date: 20110422
  Receipt Date: 20130621
  Transmission Date: 20140414
  Serious: Yes (Hospitalization, Other)
  Sender: FDA-Public Use
  Company Number: US-ROCHE-754913

PATIENT
  Age: 16 Year
  Sex: Male
  Weight: 102.1 kg

DRUGS (2)
  1. ACCUTANE [Suspect]
     Indication: ACNE
     Route: 065
     Dates: start: 19980825, end: 19981230
  2. PAXIL [Concomitant]

REACTIONS (11)
  - Colitis ulcerative [Unknown]
  - Inflammatory bowel disease [Unknown]
  - Crohn^s disease [Unknown]
  - Small intestinal obstruction [Unknown]
  - Depression [Unknown]
  - Rectal fissure [Unknown]
  - Anal fissure [Unknown]
  - Rectal polyp [Unknown]
  - Pharyngitis [Unknown]
  - Sinusitis [Unknown]
  - Epistaxis [Unknown]
